FAERS Safety Report 7866336-7 (Version None)
Quarter: 2011Q4

REPORT INFORMATION
  Report Type: 
  Country: None (occurrence: None)
  Receive Date: 20111028
  Receipt Date: 20110601
  Transmission Date: 20120403
  Serious: No
  Sender: FDA-Public Use
  Company Number: US-GLAXOSMITHKLINE-A0929878A

PATIENT

DRUGS (2)
  1. CHEMOTHERAPY [Concomitant]
  2. ADVAIR DISKUS 100/50 [Suspect]

REACTIONS (1)
  - CANDIDIASIS [None]
